FAERS Safety Report 15277615 (Version 1)
Quarter: 2018Q4

REPORT INFORMATION
  Report Type: Spontaneous
  Country: NL (occurrence: NL)
  Receive Date: 20180814
  Receipt Date: 20180814
  Transmission Date: 20190204
  Serious: Yes (Other)
  Sender: FDA-Public Use
  Company Number: NL-TEVA-2018-NL-940611

PATIENT
  Age: 76 Year
  Sex: Male
  Weight: 87 kg

DRUGS (1)
  1. LOVOFLOXACINE 250MG 2 [Suspect]
     Active Substance: LEVOFLOXACIN
     Indication: BACTERIAL ABDOMINAL INFECTION
     Dosage: 250MG 2
     Route: 065
     Dates: start: 20180507

REACTIONS (4)
  - Ventricular extrasystoles [Not Recovered/Not Resolved]
  - Musculoskeletal discomfort [Not Recovered/Not Resolved]
  - Epilepsy [Not Recovered/Not Resolved]
  - Nausea [Not Recovered/Not Resolved]

NARRATIVE: CASE EVENT DATE: 20180509
